FAERS Safety Report 9880703 (Version 1)
Quarter: 2014Q1

REPORT INFORMATION
  Report Type: Spontaneous
  Country: US (occurrence: None)
  Receive Date: 20140205
  Receipt Date: 20140205
  Transmission Date: 20141002
  Serious: Yes (Hospitalization)
  Sender: FDA-Public Use
  Company Number: IMP_07453_2014

PATIENT
  Age: 88 Year
  Sex: Female

DRUGS (9)
  1. VALPROIC ACID (VALPROIC ACID) [Suspect]
     Indication: PRODUCT USED FOR UNKNOWN INDICATION
  2. PHENOBARBITAL [Concomitant]
  3. ASPIRIN\DIPYRIDAMOLE [Concomitant]
  4. OXAZEPAM [Concomitant]
  5. LOSARTAN [Concomitant]
  6. LEVOTHYROXINE SODIUM [Concomitant]
  7. RABEPRAZOLE [Concomitant]
  8. FLUTICASONE PROPIONATE W/SALMETEROL [Concomitant]
  9. TIOTROPIUM BROMIDE [Concomitant]

REACTIONS (3)
  - Hyponatraemia [None]
  - Diverticulum [None]
  - Diaphragmatic hernia [None]
